FAERS Safety Report 24177396 (Version 2)
Quarter: 2025Q2

REPORT INFORMATION
  Report Type: Spontaneous
  Country: IN (occurrence: IN)
  Receive Date: 20240806
  Receipt Date: 20250528
  Transmission Date: 20250717
  Serious: No
  Sender: SANDOZ
  Company Number: IN-HALEON-INCH2023APC066931

PATIENT

DRUGS (1)
  1. DICLOFENAC [Suspect]
     Active Substance: DICLOFENAC
     Indication: Product used for unknown indication
     Route: 065

REACTIONS (3)
  - Severe cutaneous adverse reaction [Unknown]
  - Stevens-Johnson syndrome [Unknown]
  - Toxic epidermal necrolysis [Unknown]
